FAERS Safety Report 6004301-5 (Version None)
Quarter: 2008Q4

REPORT INFORMATION
  Report Type: 
  Country: None (occurrence: None)
  Receive Date: 20081216
  Receipt Date: 20081209
  Transmission Date: 20090506
  Serious: Yes (Hospitalization)
  Sender: FDA-Public Use
  Company Number: US-BIOGENIDEC-2008BI023951

PATIENT
  Age: 46 Year
  Sex: Female

DRUGS (17)
  1. TYSABRI [Suspect]
     Indication: MULTIPLE SCLEROSIS
     Route: 042
     Dates: start: 20080409
  2. SYNTHROID [Concomitant]
     Indication: HYPOTHYROIDISM
     Route: 048
  3. PROTONIX [Concomitant]
     Indication: GASTROOESOPHAGEAL REFLUX DISEASE
     Route: 048
  4. NEURONTIN [Concomitant]
     Indication: NEUROPATHY PERIPHERAL
     Route: 048
  5. BACLOFEN [Concomitant]
     Indication: MUSCLE SPASMS
     Route: 037
  6. BACLOFEN [Concomitant]
     Route: 037
  7. BACLOFEN [Concomitant]
     Indication: MUSCLE SPASMS
     Route: 048
  8. BACLOFEN [Concomitant]
     Route: 048
  9. DEXADRINE [Concomitant]
     Indication: FATIGUE
  10. CYMBALTA [Concomitant]
     Indication: DEPRESSION
     Route: 048
  11. FOLIC ACID [Concomitant]
     Route: 048
  12. XANAX [Concomitant]
     Indication: ANXIETY
  13. XANAX [Concomitant]
  14. AMBIEN [Concomitant]
     Indication: INSOMNIA
     Route: 048
  15. MELATONIN [Concomitant]
  16. TRI-EST 2.5/100 [Concomitant]
  17. VITAMIN B-12 [Concomitant]

REACTIONS (19)
  - ACUTE PRERENAL FAILURE [None]
  - ANXIETY [None]
  - CARDIAC FAILURE CONGESTIVE [None]
  - DEPRESSION [None]
  - GASTROINTESTINAL DISORDER [None]
  - HYPERGLYCAEMIA [None]
  - HYPOKALAEMIA [None]
  - INFECTION [None]
  - IRRITABILITY [None]
  - MICROCOCCUS INFECTION [None]
  - MULTIPLE SCLEROSIS RELAPSE [None]
  - PARANOIA [None]
  - POOR VENOUS ACCESS [None]
  - PSYCHOTIC BEHAVIOUR [None]
  - SEPSIS [None]
  - SYNCOPE [None]
  - THROMBOCYTOPENIA [None]
  - URINARY RETENTION [None]
  - WHITE BLOOD CELL COUNT INCREASED [None]
